FAERS Safety Report 8485410-8 (Version None)
Quarter: 2012Q3

REPORT INFORMATION
  Report Type: 
  Country: None (occurrence: None)
  Receive Date: 20120703
  Receipt Date: 20120628
  Transmission Date: 20120928
  Serious: Yes (Other)
  Sender: FDA-Public Use
  Company Number: PHHY2012BR055956

PATIENT
  Sex: Male

DRUGS (3)
  1. TRILEPTAL [Suspect]
     Dosage: 1 DF, DAILY
     Route: 048
  2. TRILEPTAL [Suspect]
     Indication: CONVULSION
     Dosage: 2 DF, DAILY
     Route: 048
  3. TRILEPTAL [Suspect]
     Dosage: 2 DF, DAILY
     Route: 047

REACTIONS (6)
  - EMOTIONAL DISORDER [None]
  - CARDIAC DISORDER [None]
  - CONVULSION [None]
  - DIABETES MELLITUS [None]
  - LIVER DISORDER [None]
  - HEAD DISCOMFORT [None]
